FAERS Safety Report 7453416-3 (Version None)
Quarter: 2011Q2

REPORT INFORMATION
  Report Type: 
  Country: None (occurrence: None)
  Receive Date: 20110502
  Receipt Date: 20110127
  Transmission Date: 20111010
  Serious: No
  Sender: FDA-Public Use
  Company Number: US-ASTRAZENECA-2011SE05136

PATIENT
  Sex: Female

DRUGS (5)
  1. NEXIUM [Suspect]
     Route: 048
  2. ALKA SELTZER [Concomitant]
  3. TUMS [Concomitant]
  4. PULMICORT FLEXHALER [Concomitant]
  5. SPIRIVA [Concomitant]

REACTIONS (2)
  - LACTOSE INTOLERANCE [None]
  - DRUG DOSE OMISSION [None]
